FAERS Safety Report 9628268 (Version 8)
Quarter: 2014Q1

REPORT INFORMATION
  Report Type: Spontaneous
  Country: BR (occurrence: BR)
  Receive Date: 20131017
  Receipt Date: 20140203
  Transmission Date: 20141002
  Serious: Yes (Other)
  Sender: FDA-Public Use
  Company Number: BR-PFIZER INC-2012294526

PATIENT
  Age: 34 Year
  Sex: Female
  Weight: 85 kg

DRUGS (24)
  1. SOMAVERT [Suspect]
     Indication: ACROMEGALY
     Dosage: 20 MG, 2X/DAY (2 APPLICATIONS OF 20 MG DAILY)
     Route: 058
     Dates: start: 2011
  2. SOMAVERT [Suspect]
     Dosage: 20 MG, 2X/DAY (2 APPLICATIONS OF 20 MG DAILY)
     Route: 058
  3. SOMAVERT [Suspect]
     Dosage: 10 MG, 4X/DAY (4 APPLICATIONS OF 10 MG DAILY)
     Route: 058
  4. SOMAVERT [Suspect]
     Dosage: 40 MG, 1X/DAY
     Route: 058
     Dates: start: 20120801
  5. SOMAVERT [Suspect]
     Dosage: 80 MG, EVERY MONDAY
     Dates: start: 201312
  6. ENALAPRIL [Concomitant]
     Indication: HYPERTENSION
     Dosage: 20 MG, 2X/DAY
     Dates: start: 2007
  7. ATENOLOL [Concomitant]
     Indication: HYPERTENSION
     Dosage: 4 DF (4 TABLETS OF 40 MG), DAILY
  8. METFORMIN [Concomitant]
     Indication: DIABETES MELLITUS
     Dosage: 850 MG, 3X/DAY
     Dates: start: 2005
  9. FERROUS SULFATE [Concomitant]
     Indication: ANAEMIA
     Dosage: UNK
     Dates: start: 2009
  10. SIMVASTATIN [Concomitant]
     Indication: BLOOD CHOLESTEROL INCREASED
     Dosage: 20 MG, ONCE AT NIGHT
     Dates: start: 201304
  11. PROPANOLOL [Concomitant]
     Indication: HYPERTENSION
     Dosage: 40 MG, 2X/DAY
     Dates: start: 2007
  12. NIFEDIPINE [Concomitant]
     Indication: HYPERTENSION
     Dosage: 20 MG, 3X/DAY
     Dates: start: 2008
  13. FUROSEMIDE [Concomitant]
     Indication: HYPERTENSION
     Dosage: 40 MG, 1X/DAY
     Dates: start: 2008
  14. PHENYTOIN [Concomitant]
     Indication: CONVULSION
     Dosage: 4 TABLETS OF 100MG (400 MG), DAILY
     Dates: start: 2011
  15. AAS [Concomitant]
     Dosage: 100 MG, 1X/DAY
     Dates: start: 2008
  16. TOPIRAMATE [Concomitant]
     Indication: CONVULSION
     Dosage: 8 DF (8 TABLETS), DAILY
  17. TOPIRAMATE [Concomitant]
     Indication: MIGRAINE
  18. SANDOSTATINA [Concomitant]
     Indication: ACROMEGALY
     Dosage: UNK
  19. METICORTEN [Concomitant]
     Indication: BLOOD CORTISOL DECREASED
     Dosage: UNK
  20. OCTREOTIDE [Concomitant]
  21. HUMAN INSULIN REGULAR [Concomitant]
     Dosage: UNK
  22. INSULIN INJECTION, ISOPHANE [Concomitant]
     Dosage: UNK
  23. PREDNISONE [Concomitant]
     Indication: ADRENAL INSUFFICIENCY
     Dosage: 5 MG, 1X/DAY
  24. PURAN T4 [Concomitant]
     Indication: HYPOTHYROIDISM
     Dosage: 100 MG, 1X/DAY

REACTIONS (10)
  - Lipodystrophy acquired [Unknown]
  - Injection site swelling [Recovering/Resolving]
  - Injection site induration [Recovered/Resolved]
  - Injection site haemorrhage [Unknown]
  - Injection site pruritus [Not Recovered/Not Resolved]
  - Injection site pain [Not Recovered/Not Resolved]
  - Abdominal distension [Not Recovered/Not Resolved]
  - Blood cholesterol abnormal [Not Recovered/Not Resolved]
  - Wrong technique in drug usage process [Unknown]
  - Drug prescribing error [Unknown]
